FAERS Safety Report 24042389 (Version 2)
Quarter: 2024Q3

REPORT INFORMATION
  Report Type: Spontaneous
  Country: US (occurrence: US)
  Receive Date: 20240702
  Receipt Date: 20240710
  Transmission Date: 20241017
  Serious: No
  Sender: ROCHE
  Company Number: US-ROCHE-10000009559

PATIENT
  Sex: Female

DRUGS (1)
  1. OCREVUS [Suspect]
     Active Substance: OCRELIZUMAB
     Indication: Relapsing-remitting multiple sclerosis
     Dosage: NEXT DOSE WAS 15-DEC-2023
     Route: 042
     Dates: start: 20231201

REACTIONS (2)
  - Maternal exposure timing unspecified [Unknown]
  - Abortion spontaneous [Unknown]
